FAERS Safety Report 5275477-2 (Version None)
Quarter: 2007Q1

REPORT INFORMATION
  Report Type: 
  Country: None (occurrence: None)
  Receive Date: 20070326
  Receipt Date: 20070314
  Transmission Date: 20070707
  Serious: Yes (Hospitalization)
  Sender: FDA-Public Use
  Company Number: FR-ROCHE-487575

PATIENT
  Age: 65 Year
  Sex: Female

DRUGS (6)
  1. LOXEN [Suspect]
     Indication: DRUG USE FOR UNKNOWN INDICATION
     Route: 048
     Dates: start: 20070111, end: 20070116
  2. ACUPAN [Suspect]
     Indication: DRUG USE FOR UNKNOWN INDICATION
     Dosage: FORM REPORTED AS INJECTION. ROUTE REPORTED AS IV NOS.
     Route: 042
     Dates: end: 20070122
  3. LORAZEPAM [Suspect]
     Indication: DRUG USE FOR UNKNOWN INDICATION
     Dosage: ROUTE REPORTED AS PER ORAL NOS.
     Route: 048
     Dates: end: 20070122
  4. EFFEXOR [Suspect]
     Indication: DRUG USE FOR UNKNOWN INDICATION
     Dosage: ROUTE REPORTED AS PER ORAL NOS.
     Route: 048
     Dates: start: 20070111, end: 20070116
  5. NEXIUM [Suspect]
     Indication: DRUG USE FOR UNKNOWN INDICATION
     Dosage: ROUTE REPORTED AS PER ORAL NOS.
     Route: 048
     Dates: end: 20070114
  6. PERFALGAN [Suspect]
     Indication: DRUG USE FOR UNKNOWN INDICATION
     Dosage: ROUTE REPORTED AS IV NOS.
     Route: 042
     Dates: start: 20070111, end: 20070116

REACTIONS (2)
  - NEUTROPENIA [None]
  - PNEUMOTHORAX [None]
